FAERS Safety Report 5900302-3 (Version None)
Quarter: 2008Q3

REPORT INFORMATION
  Report Type: 
  Country: None (occurrence: None)
  Receive Date: 20080926
  Receipt Date: 20080923
  Transmission Date: 20090109
  Serious: Yes (Death, Other)
  Sender: FDA-Public Use
  Company Number: PHMT2007CA02003

PATIENT
  Sex: Male
  Weight: 95.238 kg

DRUGS (6)
  1. CLOZARIL [Suspect]
     Indication: SCHIZOPHRENIA
     Dosage: 150 MG, BID
     Route: 048
     Dates: start: 20070823
  2. CLONAZEPAM [Concomitant]
  3. QUETIAPINE FUMARATE [Concomitant]
  4. CITALOPRAM HYDROBROMIDE [Concomitant]
  5. THIAMINE HCL [Concomitant]
  6. FOLIC ACID [Concomitant]

REACTIONS (9)
  - ARTERIOSCLEROSIS CORONARY ARTERY [None]
  - BLOOD ALCOHOL INCREASED [None]
  - BRAIN CONTUSION [None]
  - CEREBRAL INFARCTION [None]
  - DEPRESSED LEVEL OF CONSCIOUSNESS [None]
  - DRUG LEVEL INCREASED [None]
  - PULMONARY CONGESTION [None]
  - TOXICOLOGIC TEST ABNORMAL [None]
  - URINE ALCOHOL TEST POSITIVE [None]
